FAERS Safety Report 10853476 (Version 1)
Quarter: 2015Q1

REPORT INFORMATION
  Report Type: Spontaneous
  Country: US (occurrence: None)
  Receive Date: 20150218
  Receipt Date: 20150218
  Transmission Date: 20150721
  Serious: Yes (Disabling)
  Sender: FDA-Public Use
  Company Number: None

PATIENT
  Age: 56 Year
  Sex: Female
  Weight: 79.38 kg

DRUGS (2)
  1. LEVOFLOXACIN 500MG ZYDUS [Suspect]
     Active Substance: LEVOFLOXACIN
     Indication: SINUSITIS
     Dosage: 1 PILL ONCE DAILY
     Dates: start: 20150211, end: 20150214
  2. LEVOFLOXACIN 500MG ZYDUS [Suspect]
     Active Substance: LEVOFLOXACIN
     Indication: UPPER RESPIRATORY TRACT INFECTION
     Dosage: 1 PILL ONCE DAILY
     Dates: start: 20150211, end: 20150214

REACTIONS (9)
  - Insomnia [None]
  - Myalgia [None]
  - Burning sensation [None]
  - Paraesthesia [None]
  - Hypoaesthesia [None]
  - Nightmare [None]
  - Arthralgia [None]
  - Tendon pain [None]
  - Headache [None]

NARRATIVE: CASE EVENT DATE: 20150211
